FAERS Safety Report 14784574 (Version 3)
Quarter: 2018Q2

REPORT INFORMATION
  Report Type: Spontaneous
  Country: JP (occurrence: JP)
  Receive Date: 20180420
  Receipt Date: 20180614
  Transmission Date: 20180711
  Serious: Yes (Death, Other)
  Sender: FDA-Public Use
  Company Number: JP-009507513-1804JPN001940J

PATIENT
  Age: 90 Year
  Sex: Female
  Weight: 49 kg

DRUGS (10)
  1. CALONAL [Concomitant]
     Active Substance: ACETAMINOPHEN
     Dosage: 400 MG, TID
     Route: 048
  2. AMLODIPINE [Concomitant]
     Active Substance: AMLODIPINE BESYLATE
     Dosage: 5 MG, QD
     Route: 048
  3. TIAPRIDE HYDROCHLORIDE [Concomitant]
     Active Substance: TIAPRIDE HYDROCHLORIDE
     Dosage: 25 MG, QD
     Route: 048
  4. SERENACE [Concomitant]
     Active Substance: HALOPERIDOL
     Dosage: 0.375 MG, QD
     Route: 048
  5. BELSOMRA [Suspect]
     Active Substance: SUVOREXANT
     Indication: INSOMNIA
     Dosage: 15 MG, QD
     Route: 048
     Dates: start: 20180414, end: 20180414
  6. ROZEREM [Concomitant]
     Active Substance: RAMELTEON
     Dosage: UNK
     Route: 065
  7. YOKUKANSAN [Concomitant]
     Active Substance: HERBALS
     Dosage: 2.5 G, QD
     Route: 048
  8. DONEPEZIL HYDROCHLORIDE. [Concomitant]
     Active Substance: DONEPEZIL HYDROCHLORIDE
     Dosage: 5 MG, QD
     Route: 048
  9. SERENACE [Interacting]
     Active Substance: HALOPERIDOL
     Indication: RESTLESSNESS
     Dosage: 5 MG, QD
     Route: 030
     Dates: start: 20180415, end: 20180415
  10. TERAMURO [Concomitant]
     Dosage: 1 DF, QD
     Route: 048

REACTIONS (5)
  - Delirium [Fatal]
  - Cardiac arrest [Fatal]
  - Middle insomnia [Unknown]
  - Drug interaction [Unknown]
  - Respiratory depression [Fatal]

NARRATIVE: CASE EVENT DATE: 20180414
